FAERS Safety Report 17177001 (Version 1)
Quarter: 2019Q4

REPORT INFORMATION
  Report Type: Spontaneous
  Country: US (occurrence: US)
  Receive Date: 20191219
  Receipt Date: 20191219
  Transmission Date: 20200122
  Serious: Yes (Death)
  Sender: FDA-Public Use
  Company Number: US-PARATEK PHARMACEUTICALS, INC.-2019PTK00138

PATIENT
  Age: 70 Year
  Sex: Female

DRUGS (2)
  1. NUZYRA [Suspect]
     Active Substance: OMADACYCLINE
     Indication: RESPIRATORY DISORDER
  2. NUZYRA [Suspect]
     Active Substance: OMADACYCLINE
     Indication: BRONCHIECTASIS
     Dosage: 300 MG, 1X/DAY
     Route: 048
     Dates: start: 20190801

REACTIONS (3)
  - Drug dose titration not performed [Unknown]
  - Off label use [Unknown]
  - Death [Fatal]

NARRATIVE: CASE EVENT DATE: 20190801
